FAERS Safety Report 25961975 (Version 2)
Quarter: 2025Q4

REPORT INFORMATION
  Report Type: Spontaneous
  Country: JP (occurrence: JP)
  Receive Date: 20251027
  Receipt Date: 20251124
  Transmission Date: 20260118
  Serious: No
  Sender: MIRUM PHARMACEUTICALS
  Company Number: JP-MIRUM PHARMACEUTICALS, INC.-JP-MIR-25-00782

PATIENT

DRUGS (3)
  1. LIVMARLI [Suspect]
     Active Substance: MARALIXIBAT CHLORIDE
     Indication: Cholestatic pruritus
     Dosage: 0.3 MILLILITER
     Route: 048
  2. LIVMARLI [Suspect]
     Active Substance: MARALIXIBAT CHLORIDE
     Dosage: UNK
     Route: 048
  3. LIVMARLI [Suspect]
     Active Substance: MARALIXIBAT CHLORIDE
     Dosage: 0.3 MILLILITER
     Route: 048

REACTIONS (3)
  - Liver function test abnormal [Recovering/Resolving]
  - Diarrhoea [Recovering/Resolving]
  - Abdominal pain [Recovered/Resolved]
